FAERS Safety Report 9508122 (Version 1)
Quarter: 2013Q3

REPORT INFORMATION
  Report Type: Spontaneous
  Country: US (occurrence: US)
  Receive Date: 20130909
  Receipt Date: 20130909
  Transmission Date: 20140515
  Serious: No
  Sender: FDA-Public Use
  Company Number: US-PFIZER INC-2013255908

PATIENT
  Age: 92 Year
  Sex: Female

DRUGS (3)
  1. LYRICA [Suspect]
     Indication: HERPES ZOSTER
     Dosage: UNK
  2. LYRICA [Suspect]
     Indication: NEURALGIA
  3. LYRICA [Suspect]
     Indication: RHEUMATOID ARTHRITIS

REACTIONS (2)
  - Drug effect incomplete [Unknown]
  - Therapeutic response unexpected [Unknown]
